FAERS Safety Report 7813972-X (Version None)
Quarter: 2011Q4

REPORT INFORMATION
  Report Type: 
  Country: None (occurrence: None)
  Receive Date: 20111014
  Receipt Date: 20111007
  Transmission Date: 20120403
  Serious: Yes (Hospitalization)
  Sender: FDA-Public Use
  Company Number: JP-B.I. PHARMACEUTICALS,INC./RIDGEFIELD-2011-BP-23874NB

PATIENT
  Age: 73 Year
  Sex: Male

DRUGS (9)
  1. ALINAMIN-F [Concomitant]
     Dosage: 75 MG
     Route: 048
  2. ATELEC [Concomitant]
     Dosage: 10 MG
     Route: 048
  3. TANATRIL [Concomitant]
     Dosage: 2.5 MG
     Route: 048
  4. ASPIRIN [Concomitant]
     Dosage: 10 MG
     Route: 048
  5. PRADAXA [Suspect]
     Indication: ATRIAL FIBRILLATION
     Dosage: 220 MG
     Route: 048
  6. BETAMAC [Concomitant]
     Dosage: 100 MG
     Route: 048
  7. RABEPRAZOLE SODIUM [Concomitant]
     Dosage: 10 MG
     Route: 048
  8. ISOSORBIDE DINITRATE [Concomitant]
     Route: 062
  9. DEPAS [Concomitant]
     Dosage: 0.5 MG
     Route: 048

REACTIONS (1)
  - RHABDOMYOLYSIS [None]
